FAERS Safety Report 5895331-2 (Version None)
Quarter: 2008Q3

REPORT INFORMATION
  Report Type: 
  Country: None (occurrence: None)
  Receive Date: 20080924
  Receipt Date: 20080915
  Transmission Date: 20090109
  Serious: Yes (Other)
  Sender: FDA-Public Use
  Company Number: TH-ASTRAZENECA-2008AP07243

PATIENT

DRUGS (1)
  1. MARCAINE [Suspect]
     Route: 037
     Dates: start: 20080818, end: 20080818

REACTIONS (1)
  - ANALGESIA [None]
